FAERS Safety Report 6436007-2 (Version None)
Quarter: 2009Q4

REPORT INFORMATION
  Report Type: 
  Country: None (occurrence: None)
  Receive Date: 20091111
  Receipt Date: 20091030
  Transmission Date: 20100525
  Serious: Yes (Hospitalization, Other)
  Sender: FDA-Public Use
  Company Number: US-JNJFOC-20090902187

PATIENT
  Sex: Female
  Weight: 60.3 kg

DRUGS (32)
  1. DOXORUBICIN HCL [Suspect]
     Dosage: 49MG, CYCLE 3
     Route: 042
     Dates: start: 20090815
  2. DOXORUBICIN HCL [Suspect]
     Indication: BURKITT'S LYMPHOMA
     Dosage: 66 MG
     Route: 042
     Dates: start: 20090815
  3. RITUXAN [Suspect]
     Dosage: 820 MG
     Route: 042
  4. RITUXAN [Suspect]
     Dosage: 820 MG
     Route: 042
  5. RITUXAN [Suspect]
     Dosage: 825 MG
     Route: 042
  6. RITUXAN [Suspect]
     Indication: BURKITT'S LYMPHOMA
     Dosage: 825 MG
     Route: 042
  7. CYCLOPHOSPHAMIDE [Suspect]
     Dosage: 328MG
     Route: 065
  8. CYCLOPHOSPHAMIDE [Suspect]
     Dosage: 1312MG
     Route: 065
  9. CYCLOPHOSPHAMIDE [Suspect]
     Route: 065
  10. CYCLOPHOSPHAMIDE [Suspect]
     Indication: BURKITT'S LYMPHOMA
     Dosage: 1320MG
     Route: 065
  11. VINCRISTINE [Suspect]
     Dosage: 2MG
     Route: 042
  12. VINCRISTINE [Suspect]
     Indication: BURKITT'S LYMPHOMA
     Dosage: 2MG
     Route: 042
  13. CYTARABINE [Suspect]
     Indication: BURKITT'S LYMPHOMA
     Route: 037
  14. METHOTREXATE [Suspect]
     Dosage: 4918MG
     Route: 042
  15. METHOTREXATE [Suspect]
     Route: 042
  16. METHOTREXATE [Suspect]
     Indication: BURKITT'S LYMPHOMA
     Dosage: 500 MG
     Route: 042
  17. LISINOPRIL [Concomitant]
     Route: 065
  18. ACYCLOVIR SODIUM [Concomitant]
     Route: 065
  19. ALLOPURINOL [Concomitant]
     Route: 065
  20. FLUCONAZOLE [Concomitant]
     Route: 065
  21. DAPSONE [Concomitant]
     Route: 065
  22. COLACE [Concomitant]
     Route: 065
  23. COLACE [Concomitant]
     Route: 065
  24. BENADRYL [Concomitant]
     Indication: SLEEP DISORDER
     Dosage: 25-50MG
     Route: 065
  25. NYSTATIN [Concomitant]
     Dosage: 500,000 SWISH AND SWALLOW
     Route: 065
  26. SODIUM BICARBONATE IN PLASTIC CONTAINER [Concomitant]
     Route: 048
  27. TAZOBACTAM [Concomitant]
     Route: 065
  28. DEXTROSE [Concomitant]
     Route: 065
  29. VANCOMYCIN [Concomitant]
     Route: 065
  30. SODIUM CHLORIDE [Concomitant]
     Route: 042
  31. ACETAMINOPHEN [Concomitant]
     Indication: PYREXIA
     Route: 048
  32. PIPERACILLIN [Concomitant]
     Route: 065

REACTIONS (8)
  - ASPARTATE AMINOTRANSFERASE INCREASED [None]
  - CANDIDIASIS [None]
  - FEBRILE NEUTROPENIA [None]
  - HYPOCALCAEMIA [None]
  - LYMPHOCYTE COUNT [None]
  - NEUTROPHIL COUNT [None]
  - ORAL INFECTION [None]
  - STOMATITIS [None]
